FAERS Safety Report 6644603-2 (Version None)
Quarter: 2010Q1

REPORT INFORMATION
  Report Type: 
  Country: None (occurrence: None)
  Receive Date: 20100317
  Receipt Date: 20100302
  Transmission Date: 20100710
  Serious: Yes (Death, Other)
  Sender: FDA-Public Use
  Company Number: 2010000757

PATIENT
  Age: 46 Year
  Sex: Male

DRUGS (5)
  1. TARCEVA [Suspect]
     Indication: LUNG ADENOCARCINOMA
     Dosage: 150 MG, QD, ORAL
     Route: 048
     Dates: start: 20091217, end: 20091228
  2. AVASTIN [Suspect]
     Indication: LUNG ADENOCARCINOMA
     Dosage: 1050 MG, QD, INTRAVENOUS
     Route: 042
     Dates: start: 20100108, end: 20100108
  3. CARBOPLATIN [Suspect]
     Indication: LUNG ADENOCARCINOMA
     Dosage: 700 MG, INTRAVENOUS
     Route: 042
     Dates: start: 20090422, end: 20100108
  4. PEMETREXED [Suspect]
     Indication: LUNG ADENOCARCINOMA
     Dosage: 950 MG, QD, INTRAVENOUS
     Route: 042
     Dates: start: 20100108, end: 20100108
  5. SOLU-MEDROL [Suspect]
     Indication: INTERSTITIAL LUNG DISEASE
     Dosage: 80 MG, QD, INTRAVENOUS
     Route: 042
     Dates: start: 20091228, end: 20100127

REACTIONS (8)
  - GENERAL PHYSICAL HEALTH DETERIORATION [None]
  - INTERSTITIAL LUNG DISEASE [None]
  - LUNG ADENOCARCINOMA [None]
  - LUNG DISORDER [None]
  - LYMPHANGIOSIS CARCINOMATOSA [None]
  - MALIGNANT NEOPLASM PROGRESSION [None]
  - PNEUMOCYSTIS JIROVECI PNEUMONIA [None]
  - RESPIRATORY FAILURE [None]
